FAERS Safety Report 8133264-1 (Version None)
Quarter: 2012Q1

REPORT INFORMATION
  Report Type: 
  Country: None (occurrence: None)
  Receive Date: 20120213
  Receipt Date: 20120131
  Transmission Date: 20120608
  Serious: Yes (Other)
  Sender: FDA-Public Use
  Company Number: US-ROCHE-1001889

PATIENT
  Sex: Male
  Weight: 61.29 kg

DRUGS (2)
  1. ACCUTANE [Suspect]
     Indication: ACNE
     Route: 065
     Dates: start: 19960101
  2. RETIN-A [Concomitant]
     Indication: ACNE

REACTIONS (5)
  - INFLAMMATORY BOWEL DISEASE [None]
  - CHAPPED LIPS [None]
  - HAEMORRHOIDS [None]
  - ANXIETY [None]
  - COLITIS ULCERATIVE [None]
